FAERS Safety Report 21569750 (Version 6)
Quarter: 2023Q2

REPORT INFORMATION
  Report Type: Spontaneous
  Country: CA (occurrence: CA)
  Receive Date: 20221109
  Receipt Date: 20230616
  Transmission Date: 20230721
  Serious: Yes (Other)
  Sender: FDA-Public Use
  Company Number: CA-AUROBINDO-AUR-APL-2022-046741

PATIENT
  Sex: Female

DRUGS (31)
  1. AMLODIPINE [Suspect]
     Active Substance: AMLODIPINE BESYLATE
     Indication: Product used for unknown indication
     Dosage: UNK
     Route: 065
  2. AMLODIPINE [Suspect]
     Active Substance: AMLODIPINE BESYLATE
     Indication: Product used for unknown indication
     Dosage: 1 DOSAGE FORM, ONCE A DAY
     Route: 065
  3. AMLODIPINE [Suspect]
     Active Substance: AMLODIPINE BESYLATE
     Dosage: UNK
     Route: 065
  4. ARIPIPRAZOLE [Suspect]
     Active Substance: ARIPIPRAZOLE
     Indication: Product used for unknown indication
     Dosage: UNK
     Route: 065
  5. CLOZAPINE [Suspect]
     Active Substance: CLOZAPINE
     Indication: Product used for unknown indication
     Dosage: 1 DOSAGE FORM, ONCE A DAY
     Route: 065
  6. CLOZAPINE [Suspect]
     Active Substance: CLOZAPINE
     Dosage: 3 DOSAGE FORM, ONCE A DAY
     Route: 065
  7. CLOZAPINE [Suspect]
     Active Substance: CLOZAPINE
     Dosage: UNK
     Route: 065
  8. OLANZAPINE [Suspect]
     Active Substance: OLANZAPINE
     Indication: Mood altered
     Dosage: UNK
     Route: 065
  9. ACETAMINOPHEN [Suspect]
     Active Substance: ACETAMINOPHEN
     Indication: Pain
     Dosage: 2 DOSAGE FORM, TWO TIMES A DAY
     Route: 065
  10. ACETAMINOPHEN [Suspect]
     Active Substance: ACETAMINOPHEN
     Indication: Pyrexia
     Dosage: UNK
     Route: 065
  11. ACETAMINOPHEN [Suspect]
     Active Substance: ACETAMINOPHEN
     Indication: Product used for unknown indication
     Dosage: UNK
     Route: 065
  12. ACETAMINOPHEN [Suspect]
     Active Substance: ACETAMINOPHEN
     Dosage: UNK
     Route: 065
  13. ACETAMINOPHEN [Suspect]
     Active Substance: ACETAMINOPHEN
     Dosage: 2 DOSAGE FORM
     Route: 065
  14. ALUMINUM HYDROXIDE [Suspect]
     Active Substance: ALUMINUM HYDROXIDE
     Indication: Abdominal discomfort
     Dosage: 30 MILLILITER
     Route: 048
  15. ALUMINUM HYDROXIDE [Suspect]
     Active Substance: ALUMINUM HYDROXIDE
     Dosage: UNK
     Route: 065
  16. CHOLECALCIFEROL [Suspect]
     Active Substance: CHOLECALCIFEROL
     Indication: Product used for unknown indication
     Dosage: UNK
     Route: 065
  17. CLOTRIMAZOLE [Suspect]
     Active Substance: CLOTRIMAZOLE
     Indication: Rash
     Dosage: UNK
     Route: 065
  18. CLOTRIMAZOLE [Suspect]
     Active Substance: CLOTRIMAZOLE
     Indication: Product used for unknown indication
  19. DIVIGEL [Suspect]
     Active Substance: ESTRADIOL
     Indication: Product used for unknown indication
     Dosage: UNK
     Route: 065
  20. ESTRADIOL BENZOATE [Suspect]
     Active Substance: ESTRADIOL BENZOATE
     Indication: Product used for unknown indication
     Dosage: 1 DOSAGE FORM
     Route: 067
  21. ESTRADIOL BENZOATE [Suspect]
     Active Substance: ESTRADIOL BENZOATE
     Dosage: UNK
     Route: 065
  22. FLUMIST QUADRIVALENT [Suspect]
     Active Substance: INFLUENZA A VIRUS A/CALIFORNIA/7/2009 (H1N1) LIVE(ATTENUATED) ANTIGEN\INFLUENZA A VIRUS A/TEXAS/50/2
     Indication: Product used for unknown indication
     Dosage: UNK
     Route: 065
  23. INFLUENZA VIRUS VACCINE [Suspect]
     Active Substance: INFLUENZA VIRUS VACCINE
     Indication: Product used for unknown indication
     Dosage: 0.2 MILLILITER
     Route: 065
  24. LEVOTHYROXINE SODIUM [Suspect]
     Active Substance: LEVOTHYROXINE SODIUM
     Indication: Product used for unknown indication
     Dosage: 1 DOSAGE FORM, ONCE A DAY
     Route: 065
  25. LEVOTHYROXINE SODIUM [Suspect]
     Active Substance: LEVOTHYROXINE SODIUM
     Dosage: UNK
     Route: 065
  26. RANITIDINE [Suspect]
     Active Substance: RANITIDINE
     Indication: Product used for unknown indication
     Dosage: 150 MILLIGRAM, TWO TIMES A DAY
     Route: 065
  27. RANITIDINE [Suspect]
     Active Substance: RANITIDINE
     Dosage: UNK
     Route: 065
  28. REXULTI [Suspect]
     Active Substance: BREXPIPRAZOLE
     Indication: Product used for unknown indication
     Dosage: UNK
     Route: 065
  29. VALPROIC ACID [Suspect]
     Active Substance: VALPROIC ACID
     Indication: Product used for unknown indication
     Dosage: UNK
     Route: 065
  30. ZOPICLONE [Suspect]
     Active Substance: ZOPICLONE
     Indication: Insomnia
     Dosage: 1 DOSAGE FORM, ONCE A DAY
     Route: 048
  31. ZOPICLONE [Suspect]
     Active Substance: ZOPICLONE
     Indication: Product used for unknown indication
     Dosage: UNK
     Route: 048

REACTIONS (5)
  - Schizoaffective disorder [Unknown]
  - Electrocardiogram QT prolonged [Unknown]
  - Drug level increased [Unknown]
  - Drug interaction [Unknown]
  - Product use issue [Unknown]
